FAERS Safety Report 8044478-3 (Version None)
Quarter: 2012Q1

REPORT INFORMATION
  Report Type: 
  Country: None (occurrence: None)
  Receive Date: 20120113
  Receipt Date: 20120103
  Transmission Date: 20120608
  Serious: Yes (Other)
  Sender: FDA-Public Use
  Company Number: CA-JNJFOC-2010005175

PATIENT
  Sex: Male

DRUGS (6)
  1. METFORMIN HCL [Concomitant]
     Indication: PRODUCT USED FOR UNKNOWN INDICATION
     Dosage: DAILY DOSE TEXT: UNSPECIFIED
     Route: 065
  2. SITAGLIPTIN [Concomitant]
     Indication: PRODUCT USED FOR UNKNOWN INDICATION
     Dosage: DAILY DOSE TEXT: UNSPECIFIED
     Route: 065
  3. ACCUPRIL [Concomitant]
     Indication: PRODUCT USED FOR UNKNOWN INDICATION
     Dosage: DAILY DOSE TEXT: UNSPECIFIED
     Route: 065
  4. ASPIRIN [Concomitant]
     Indication: PRODUCT USED FOR UNKNOWN INDICATION
     Dosage: DAILY DOSE TEXT: 81 MG UNSPECIFIED
     Route: 065
  5. LIPITOR [Concomitant]
     Indication: PRODUCT USED FOR UNKNOWN INDICATION
     Dosage: DAILY DOSE TEXT: UNSPECIFIED
     Route: 065
  6. ROLAIDS [Suspect]
     Indication: DYSPEPSIA
     Dosage: DAILY DOSE TEXT: ^USUALLY ONE OR TWO A DAY^ AS NEEDED
     Route: 048
     Dates: end: 20100201

REACTIONS (18)
  - PYREXIA [None]
  - ABDOMINAL PAIN UPPER [None]
  - DECREASED APPETITE [None]
  - VOMITING [None]
  - HEADACHE [None]
  - MALAISE [None]
  - DIZZINESS [None]
  - BLOOD URINE PRESENT [None]
  - RENAL PAIN [None]
  - ASTHENIA [None]
  - MUSCULOSKELETAL STIFFNESS [None]
  - BLOOD PRESSURE INCREASED [None]
  - ABDOMINAL DISTENSION [None]
  - PAIN [None]
  - NAUSEA [None]
  - DIARRHOEA [None]
  - HYPERSENSITIVITY [None]
  - FATIGUE [None]
